FAERS Safety Report 7150827-0 (Version None)
Quarter: 2010Q4

REPORT INFORMATION
  Report Type: 
  Country: None (occurrence: None)
  Receive Date: 20101126
  Receipt Date: 20101111
  Transmission Date: 20110411
  Serious: Yes (Hospitalization)
  Sender: FDA-Public Use
  Company Number: WAES 0908MEX00012

PATIENT
  Age: 44 Year
  Sex: Female

DRUGS (7)
  1. TAB RALTEGRAVIR POTASSIUM [Suspect]
     Indication: HIV INFECTION
     Dosage: 400 MG BID, PO
     Route: 048
     Dates: start: 20070115
  2. TAB PLACEBO (UNSPECIFIED) [Suspect]
     Indication: HIV INFECTION
     Dosage: 600 MG DAILY, PO
     Route: 048
     Dates: start: 20070115
  3. TRUVADA [Suspect]
     Indication: HIV INFECTION
     Dosage: 200-300 MG DAILY, PO
     Route: 048
     Dates: start: 20070115
  4. CETIRIZINE HYDROCHLORIDE [Concomitant]
  5. LORAZEPAM [Concomitant]
  6. METOCLOPRAMIDE [Concomitant]
  7. RANITIDINE [Concomitant]

REACTIONS (10)
  - ALOPECIA [None]
  - BREAST CANCER FEMALE [None]
  - BRONCHITIS [None]
  - CHEST PAIN [None]
  - DECREASED APPETITE [None]
  - HEADACHE [None]
  - NAUSEA [None]
  - RHINORRHOEA [None]
  - VOMITING [None]
  - WEIGHT DECREASED [None]
